FAERS Safety Report 18079377 (Version 1)
Quarter: 2020Q3

REPORT INFORMATION
  Report Type: Spontaneous
  Country: US (occurrence: US)
  Receive Date: 20200727
  Receipt Date: 20200727
  Transmission Date: 20201103
  Serious: Yes (Death)
  Sender: FDA-Public Use
  Company Number: None

PATIENT
  Age: 22 Year
  Sex: Male

DRUGS (1)
  1. ABILIFY MAINTENA [Suspect]
     Active Substance: ARIPIPRAZOLE
     Indication: DRUG DEPENDENCE
     Dosage: 400MG Q4W IM
     Route: 030
     Dates: start: 20200212, end: 20200709

REACTIONS (1)
  - Death [None]

NARRATIVE: CASE EVENT DATE: 20200709
